FAERS Safety Report 9785756 (Version 1)
Quarter: 2013Q4

REPORT INFORMATION
  Report Type: Spontaneous
  Country: US (occurrence: None)
  Receive Date: 20131223
  Receipt Date: 20131223
  Transmission Date: 20140711
  Serious: Yes (Life-Threatening, Hospitalization)
  Sender: FDA-Public Use
  Company Number: DAV-AE-ATE-13-01

PATIENT
  Age: 57 Year
  Sex: Male

DRUGS (8)
  1. ATENOLOL [Suspect]
     Indication: SUICIDE ATTEMPT
     Dosage: 50MG, (50 TABLETS)
  2. AMLODIPINE [Concomitant]
  3. LITHIUM [Concomitant]
  4. METHYLPHENIDATE [Concomitant]
  5. LAMOTRIGINE [Concomitant]
  6. LEVOTHYROXINE [Concomitant]
  7. CLONAZEPAM [Concomitant]
  8. MIRTAZAPINE [Concomitant]

REACTIONS (9)
  - Hypotension [None]
  - Bradycardia [None]
  - Renal impairment [None]
  - Depressed level of consciousness [None]
  - Defect conduction intraventricular [None]
  - Overdose [None]
  - Suicide attempt [None]
  - Electrocardiogram QRS complex prolonged [None]
  - Haemodialysis [None]
